FAERS Safety Report 7009491-3 (Version None)
Quarter: 2010Q3

REPORT INFORMATION
  Report Type: 
  Country: None (occurrence: None)
  Receive Date: 20100923
  Receipt Date: 20100910
  Transmission Date: 20110219
  Serious: Yes (Hospitalization, Congenital Anomaly)
  Sender: FDA-Public Use
  Company Number: PHHY2010JP58242

PATIENT
  Sex: Female
  Weight: 53 kg

DRUGS (6)
  1. ALISKIREN/AMOLODIPINE BESYLATE/HYDROCHLOROTHIAZIDE [Suspect]
     Indication: HYPERTENSION
     Dosage: 150 MG, QD
     Route: 048
     Dates: start: 20100122
  2. ALISKIREN/AMOLODIPINE BESYLATE/HYDROCHLOROTHIAZIDE [Suspect]
     Dosage: UNK
     Route: 048
     Dates: start: 20100209
  3. AMLODIPINE BESYLATE [Concomitant]
     Indication: HYPERTENSION
     Dosage: 5 MG
     Route: 048
     Dates: start: 20100122
  4. ADALAT CC [Concomitant]
     Indication: HYPERTENSION
     Dosage: 40 MG
     Route: 048
     Dates: start: 20100416
  5. ADALAT CC [Concomitant]
     Dosage: 20 MG
     Route: 048
  6. LIVALO KOWA [Concomitant]
     Dosage: 1 MG
     Route: 048
     Dates: start: 20100122, end: 20100721

REACTIONS (2)
  - HYPERURICAEMIA [None]
  - RENAL IMPAIRMENT [None]
